FAERS Safety Report 10333995 (Version 2)
Quarter: 2014Q3

REPORT INFORMATION
  Report Type: Spontaneous
  Country: US (occurrence: US)
  Receive Date: 20140723
  Receipt Date: 20140723
  Transmission Date: 20150326
  Serious: No
  Sender: FDA-Public Use
  Company Number: US-UNITED THERAPEUTICS-UTC-046589

PATIENT
  Age: 64 Year
  Sex: Male
  Weight: 83.9 kg

DRUGS (2)
  1. REMODULIN [Suspect]
     Active Substance: TREPROSTINIL
     Dosage: 0.036 UG/KG/MIN, CONTINUING
     Route: 058
     Dates: start: 20090612
  2. REVATIO [Concomitant]
     Active Substance: SILDENAFIL CITRATE

REACTIONS (6)
  - Infusion site infection [Unknown]
  - Infusion site pustule [Unknown]
  - Infusion site pain [Unknown]
  - Infusion site swelling [Unknown]
  - Purulent discharge [Unknown]
  - Infusion site erythema [Unknown]

NARRATIVE: CASE EVENT DATE: 20140322
